FAERS Safety Report 4705366-0 (Version None)
Quarter: 2005Q3

REPORT INFORMATION
  Report Type: 
  Country: None (occurrence: None)
  Receive Date: 20050701
  Receipt Date: 20050524
  Transmission Date: 20060218
  Serious: Yes (Hospitalization)
  Sender: FDA-Public Use
  Company Number: PT-JNJFOC-20050506257

PATIENT
  Sex: Female
  Weight: 78 kg

DRUGS (3)
  1. DAKTARIN [Suspect]
     Indication: APHTHOUS STOMATITIS
     Route: 049
     Dates: start: 20050307, end: 20050314
  2. INDAPAMIDE [Concomitant]
     Route: 049
  3. FLUVASTATIN SODIUM [Concomitant]
     Route: 049

REACTIONS (3)
  - ABDOMINAL PAIN [None]
  - NAUSEA [None]
  - VOMITING [None]
